FAERS Safety Report 21158729 (Version 1)
Quarter: 2022Q3

REPORT INFORMATION
  Report Type: Spontaneous
  Country: CZ (occurrence: CZ)
  Receive Date: 20220802
  Receipt Date: 20220802
  Transmission Date: 20221026
  Serious: Yes (Other)
  Sender: FDA-Public Use
  Company Number: CZ-CELLTRION INC.-2022CZ012084

PATIENT

DRUGS (1)
  1. INFLIXIMAB [Suspect]
     Active Substance: INFLIXIMAB
     Indication: Colitis ulcerative
     Dosage: APPLIED (AFTER 6 WEEKS)

REACTIONS (3)
  - Condition aggravated [Recovering/Resolving]
  - Drug level decreased [Recovering/Resolving]
  - Drug specific antibody absent [Recovering/Resolving]
